FAERS Safety Report 8202967-2 (Version None)
Quarter: 2012Q1

REPORT INFORMATION
  Report Type: 
  Country: None (occurrence: None)
  Receive Date: 20120312
  Receipt Date: 20120307
  Transmission Date: 20120608
  Serious: Yes (Other)
  Sender: FDA-Public Use
  Company Number: US-PFIZER INC-2012061917

PATIENT

DRUGS (1)
  1. EFFEXOR XR [Suspect]
     Dosage: 450 MG, UNK

REACTIONS (2)
  - MALABSORPTION [None]
  - GASTRIC OPERATION [None]
